FAERS Safety Report 14013347 (Version 1)
Quarter: 2017Q3

REPORT INFORMATION
  Report Type: Spontaneous
  Country: US (occurrence: US)
  Receive Date: 20170926
  Receipt Date: 20170926
  Transmission Date: 20171128
  Serious: Yes (Other)
  Sender: FDA-Public Use
  Company Number: US-AKORN PHARMACEUTICALS-2017AKN01045

PATIENT
  Age: 24 Year
  Sex: Female
  Weight: 59.86 kg

DRUGS (5)
  1. NECON [Concomitant]
     Active Substance: ETHINYL ESTRADIOL\NORETHINDRONE
     Dosage: 1 TABLETS (0.5/35 MG/MCG), 1X/DAY FOR 21 DAYS (OFF 7 DAYS) THEN REPEAT
     Route: 048
     Dates: start: 20090820
  2. TRETINOIN. [Concomitant]
     Active Substance: TRETINOIN
     Dosage: 0.05 %, 1X/DAY AT BEDTIME
     Route: 061
     Dates: start: 20170314
  3. CEPHALEXIN. [Suspect]
     Active Substance: CEPHALEXIN
     Dosage: 500 MG, 2X/DAY FOR 10 DAYS
     Dates: start: 20170721
  4. MYORISAN [Suspect]
     Active Substance: ISOTRETINOIN
     Indication: ACNE CYSTIC
     Dosage: 20 MG, 1X/DAY
     Route: 048
     Dates: start: 20170722, end: 20170728
  5. CLINDAMYCIN HCL [Concomitant]
     Active Substance: CLINDAMYCIN HYDROCHLORIDE
     Dosage: 300 MG, 2X/DAY
     Dates: start: 20170314, end: 2017

REACTIONS (5)
  - Headache [Recovered/Resolved]
  - Disturbance in attention [Recovered/Resolved]
  - Chills [Recovered/Resolved]
  - Intracranial pressure increased [Unknown]
  - Mood swings [Recovered/Resolved]

NARRATIVE: CASE EVENT DATE: 201707
